FAERS Safety Report 9555289 (Version 4)
Quarter: 2013Q4

REPORT INFORMATION
  Report Type: Spontaneous
  Country: JP (occurrence: JP)
  Receive Date: 20130926
  Receipt Date: 20131022
  Transmission Date: 20140711
  Serious: Yes (Death)
  Sender: FDA-Public Use
  Company Number: JP-ELI_LILLY_AND_COMPANY-JP201309007239

PATIENT
  Age: 76 Year
  Sex: Female

DRUGS (18)
  1. FORTEO [Suspect]
     Indication: OSTEOPOROSIS
     Dosage: 20 UG, QD
     Route: 058
     Dates: start: 20130914, end: 20130915
  2. EXCELASE [Concomitant]
     Route: 048
  3. SELBEX [Concomitant]
     Route: 048
  4. NITROGLYCERIN [Concomitant]
     Route: 065
  5. RHUBARB DRY EXTRACT [Concomitant]
     Route: 048
  6. BONALON [Concomitant]
     Route: 048
  7. CARNACULIN [Concomitant]
     Route: 048
  8. CARROT SEED OIL [Concomitant]
     Route: 048
  9. MAGMITT [Concomitant]
     Route: 048
  10. METHYCOBAL [Concomitant]
     Route: 048
  11. TRICOR [Concomitant]
     Route: 048
  12. TERMACET [Concomitant]
     Route: 048
  13. PRIMPERAN [Concomitant]
     Dosage: UNK
     Route: 048
     Dates: start: 20130913
  14. SILECE [Concomitant]
     Route: 048
  15. LUNESTA [Concomitant]
     Route: 065
  16. REMERON [Concomitant]
     Route: 048
  17. HYPEN [Concomitant]
     Indication: BACK PAIN
     Dosage: UNK
     Route: 048
     Dates: start: 20130910
  18. MUCOSTA [Concomitant]
     Dosage: UNK
     Route: 048
     Dates: start: 20130910

REACTIONS (1)
  - Liver disorder [Fatal]
